FAERS Safety Report 6034785-8 (Version None)
Quarter: 2009Q1

REPORT INFORMATION
  Report Type: 
  Country: None (occurrence: None)
  Receive Date: 20090109
  Receipt Date: 20090109
  Transmission Date: 20090719
  Serious: Yes (Life-Threatening)
  Sender: FDA-Public Use
  Company Number: None

PATIENT
  Age: 13 Year
  Sex: Male
  Weight: 63.5036 kg

DRUGS (1)
  1. DEPAKOTE [Suspect]
     Indication: PETIT MAL EPILEPSY
     Dosage: 2 PILLS AT BEDTIME PO
     Route: 048
     Dates: start: 20070701, end: 20081231

REACTIONS (2)
  - SUICIDAL IDEATION [None]
  - SUICIDE ATTEMPT [None]
